FAERS Safety Report 12731608 (Version 1)
Quarter: 2016Q3

REPORT INFORMATION
  Report Type: Spontaneous
  Country: US (occurrence: US)
  Receive Date: 20160912
  Receipt Date: 20160912
  Transmission Date: 20161109
  Serious: Yes (Hospitalization)
  Sender: FDA-Public Use
  Company Number: None

PATIENT
  Age: 78 Year
  Sex: Female

DRUGS (1)
  1. FORTEO [Suspect]
     Active Substance: TERIPARATIDE
     Dosage: FORTEO 20 MCG - PO - QD
     Route: 058
     Dates: start: 20160513

REACTIONS (3)
  - Asthma [None]
  - Chronic obstructive pulmonary disease [None]
  - Drug dose omission [None]

NARRATIVE: CASE EVENT DATE: 2016
